FAERS Safety Report 12773246 (Version 1)
Quarter: 2016Q3

REPORT INFORMATION
  Report Type: Spontaneous
  Country: US (occurrence: US)
  Receive Date: 20160922
  Receipt Date: 20160922
  Transmission Date: 20161109
  Serious: No
  Sender: FDA-Public Use
  Company Number: US-ENDO PHARMACEUTICALS INC.-2016-002649

PATIENT
  Age: 42 Year
  Sex: Female
  Weight: 61.29 kg

DRUGS (2)
  1. SPIRONOLACTONE TABLETS 25MG [Suspect]
     Active Substance: SPIRONOLACTONE
     Route: 048
     Dates: start: 201403
  2. SPIRONOLACTONE TABLETS 25MG [Suspect]
     Active Substance: SPIRONOLACTONE
     Indication: PROPHYLAXIS
     Route: 048
     Dates: start: 2001, end: 2013

REACTIONS (7)
  - Abdominal discomfort [Not Recovered/Not Resolved]
  - Dyspepsia [Not Recovered/Not Resolved]
  - Sinus disorder [Not Recovered/Not Resolved]
  - Hunger [Not Recovered/Not Resolved]
  - Gastrooesophageal reflux disease [Not Recovered/Not Resolved]
  - Off label use [Unknown]
  - Dysgeusia [Not Recovered/Not Resolved]

NARRATIVE: CASE EVENT DATE: 2001
